FAERS Safety Report 13894804 (Version 1)
Quarter: 2017Q3

REPORT INFORMATION
  Report Type: Spontaneous
  Country: US (occurrence: None)
  Receive Date: 20170817
  Receipt Date: 20170817
  Transmission Date: 20171127
  Serious: Yes (Hospitalization)
  Sender: FDA-Public Use
  Company Number: None

PATIENT
  Sex: Female

DRUGS (9)
  1. AZULFIDINE [Concomitant]
     Active Substance: SULFASALAZINE
  2. LASIX [Concomitant]
     Active Substance: FUROSEMIDE
  3. ADCIRCA [Suspect]
     Active Substance: TADALAFIL
     Indication: PULMONARY ARTERIAL HYPERTENSION
     Route: 048
     Dates: start: 20091124
  4. TENONUIN [Concomitant]
  5. IRON [Concomitant]
     Active Substance: IRON
  6. ATORVASTATIN [Concomitant]
     Active Substance: ATORVASTATIN
  7. LOSARTAN. [Concomitant]
     Active Substance: LOSARTAN
  8. AZULFIDINE [Concomitant]
     Active Substance: SULFASALAZINE
  9. DIGOXIN. [Concomitant]
     Active Substance: DIGOXIN

REACTIONS (4)
  - Cerebrovascular accident [None]
  - Drug dose omission [None]
  - Diverticulitis [None]
  - Pneumonia [None]
